FAERS Safety Report 9870353 (Version 1)
Quarter: 2014Q1

REPORT INFORMATION
  Report Type: Spontaneous
  Country: ES (occurrence: ES)
  Receive Date: 20140205
  Receipt Date: 20140205
  Transmission Date: 20141002
  Serious: Yes (Other)
  Sender: FDA-Public Use
  Company Number: ES-BIOMARINAP-ES-2014-102429

PATIENT
  Age: 21 Year
  Sex: Female

DRUGS (2)
  1. ALDURAZYME [Suspect]
     Indication: MUCOPOLYSACCHARIDOSIS I
     Dosage: UNK
     Dates: start: 2002, end: 20130626
  2. ALDURAZYME [Suspect]
     Dosage: UNK
     Dates: start: 20130704

REACTIONS (2)
  - Dizziness [Recovered/Resolved]
  - Infusion related reaction [Recovered/Resolved]
